FAERS Safety Report 16837458 (Version 1)
Quarter: 2019Q3

REPORT INFORMATION
  Report Type: Spontaneous
  Country: CA (occurrence: CA)
  Receive Date: 20190923
  Receipt Date: 20190923
  Transmission Date: 20191005
  Serious: Yes (Other)
  Sender: FDA-Public Use
  Company Number: CA-ROCHE-2404708

PATIENT
  Age: 74 Year
  Sex: Female

DRUGS (23)
  1. RITUXAN [Suspect]
     Active Substance: RITUXIMAB
     Indication: NEOPLASM MALIGNANT
  2. ASA [Concomitant]
     Active Substance: ASPIRIN
  3. DIPHENHYDRAMINE. [Concomitant]
     Active Substance: DIPHENHYDRAMINE
     Indication: PREMEDICATION
     Route: 048
  4. FENTANYL CITRATE. [Suspect]
     Active Substance: FENTANYL CITRATE
     Indication: PRODUCT USED FOR UNKNOWN INDICATION
     Route: 065
  5. ESOMEPRAZOLE. [Concomitant]
     Active Substance: ESOMEPRAZOLE MAGNESIUM
  6. HYDROMORPH CONTIN [Concomitant]
     Active Substance: HYDROMORPHONE
  7. PREDNISONE. [Concomitant]
     Active Substance: PREDNISONE
  8. NAPROSYN [Concomitant]
     Active Substance: NAPROXEN
  9. RITUXAN [Suspect]
     Active Substance: RITUXIMAB
     Indication: RHEUMATOID ARTHRITIS
     Route: 042
  10. HYDROXYCHLOROQUINE [Concomitant]
     Active Substance: HYDROXYCHLOROQUINE
  11. RABEPRAZOLE [Concomitant]
     Active Substance: RABEPRAZOLE
  12. SULFASALAZINE. [Concomitant]
     Active Substance: SULFASALAZINE
  13. FOLIC ACID. [Concomitant]
     Active Substance: FOLIC ACID
  14. FUROSEMIDE. [Concomitant]
     Active Substance: FUROSEMIDE
  15. ORENCIA [Concomitant]
     Active Substance: ABATACEPT
     Route: 042
  16. PREGABALIN. [Concomitant]
     Active Substance: PREGABALIN
  17. LEFLUNOMIDE. [Concomitant]
     Active Substance: LEFLUNOMIDE
  18. SYNTHROID [Concomitant]
     Active Substance: LEVOTHYROXINE SODIUM
  19. TYLENOL [Concomitant]
     Active Substance: ACETAMINOPHEN
     Indication: PREMEDICATION
     Route: 048
  20. TYLENOL 8HR [Concomitant]
     Active Substance: ACETAMINOPHEN
     Indication: ARTHRALGIA
  21. AMLODIPINE [Concomitant]
     Active Substance: AMLODIPINE BESYLATE
  22. POLYSACCHARIDE-IRON COMPLEX [Concomitant]
     Active Substance: FERRIC POLYSACCHARIDE COMPLEX
  23. SOLU-MEDROL [Concomitant]
     Active Substance: METHYLPREDNISOLONE SODIUM SUCCINATE
     Indication: PREMEDICATION
     Route: 042

REACTIONS (20)
  - Blood pressure systolic increased [Recovering/Resolving]
  - Oxygen saturation decreased [Recovering/Resolving]
  - Ligament sprain [Recovering/Resolving]
  - Blood pressure systolic abnormal [Recovering/Resolving]
  - Infusion site extravasation [Recovering/Resolving]
  - Injection site mass [Recovering/Resolving]
  - Contusion [Recovering/Resolving]
  - Heart rate increased [Recovering/Resolving]
  - Injection site extravasation [Recovering/Resolving]
  - Rheumatoid arthritis [Recovering/Resolving]
  - Off label use [Unknown]
  - Blood pressure increased [Recovering/Resolving]
  - Localised infection [Recovering/Resolving]
  - Mass [Recovering/Resolving]
  - Intentional product use issue [Unknown]
  - Blood pressure fluctuation [Recovering/Resolving]
  - Dizziness [Recovering/Resolving]
  - Fall [Unknown]
  - Hypotension [Recovering/Resolving]
  - Tachycardia [Recovering/Resolving]
